FAERS Safety Report 19277582 (Version 1)
Quarter: 2021Q2

REPORT INFORMATION
  Report Type: Spontaneous
  Country: US (occurrence: US)
  Receive Date: 20210520
  Receipt Date: 20210520
  Transmission Date: 20210717
  Serious: Yes (Other)
  Sender: FDA-Public Use
  Company Number: US-HIKMA PHARMACEUTICALS USA INC.-US-H14001-14-00055

PATIENT
  Age: 49 Year
  Sex: Male

DRUGS (3)
  1. MORPHINE [Suspect]
     Active Substance: MORPHINE
     Indication: PRODUCT USED FOR UNKNOWN INDICATION
     Route: 065
  2. INFUMORPH [Suspect]
     Active Substance: MORPHINE SULFATE
     Dates: start: 201312
  3. INFUMORPH [Suspect]
     Active Substance: MORPHINE SULFATE
     Indication: PAIN
     Dates: start: 20130307, end: 201312

REACTIONS (7)
  - Pain [Unknown]
  - Incorrect dose administered [Unknown]
  - Fall [Unknown]
  - Blood glucose abnormal [Unknown]
  - Spinal fracture [Unknown]
  - Withdrawal syndrome [Unknown]
  - Emotional distress [Unknown]

NARRATIVE: CASE EVENT DATE: 201312
